FAERS Safety Report 5162209-1 (Version None)
Quarter: 2006Q4

REPORT INFORMATION
  Report Type: 
  Country: None (occurrence: None)
  Receive Date: 20061121
  Receipt Date: 20061109
  Transmission Date: 20070319
  Serious: Yes (Hospitalization)
  Sender: FDA-Public Use
  Company Number: 232427

PATIENT
  Age: 74 Year
  Sex: Male
  Weight: 183 kg

DRUGS (9)
  1. AVASTIN [Suspect]
     Indication: COLORECTAL CANCER METASTATIC
     Dosage: 465 MG, Q2W, INTRAVENOUS
     Route: 042
     Dates: start: 20060329, end: 20061101
  2. CETUXIMAB (CETUXIMAB) [Suspect]
     Indication: COLORECTAL CANCER METASTATIC
     Dosage: 538 MG, 1/WEEK, INTRAVENOUS
     Route: 042
     Dates: start: 20060329, end: 20061101
  3. FLUOROURACIL [Suspect]
     Indication: COLORECTAL CANCER METASTATIC
     Dosage: 860 MG, Q2W, INTRAVENOUS
     Route: 042
     Dates: start: 20060329, end: 20061101
  4. LEUCOVORIN (LEUCOVRIN CALCIUM) [Suspect]
     Indication: COLORECTAL CANCER METASTATIC
     Dosage: 360 MG, Q2W, INTRAVENOUS
     Route: 042
     Dates: start: 20060329, end: 20061101
  5. CORTISONE (CORTISONE ACETATE) [Concomitant]
  6. FLUDROCORTISONE (FLUDROCORTISONE ACETATE) [Concomitant]
  7. COUMADIN [Concomitant]
  8. PROSCAR [Concomitant]
  9. CIPRO [Concomitant]

REACTIONS (1)
  - GASTROENTERITIS [None]
